FAERS Safety Report 4696126-8 (Version None)
Quarter: 2005Q2

REPORT INFORMATION
  Report Type: 
  Country: None (occurrence: None)
  Receive Date: 20050620
  Receipt Date: 20050606
  Transmission Date: 20051028
  Serious: Yes (Hospitalization)
  Sender: FDA-Public Use
  Company Number: 2005086089

PATIENT
  Age: 48 Year
  Sex: Female

DRUGS (4)
  1. EPIRUBICIN [Suspect]
     Indication: BREAST CANCER
     Dosage: (130 MG, CYCLICAL), INTRAVENOUS
     Route: 042
     Dates: end: 20040924
  2. CYCLOPHOSPHAMIDE [Suspect]
     Indication: BREAST CANCER
     Dosage: (CYCLICAL)
     Dates: end: 20040924
  3. GEMCITABINE (GEMCITABINE) [Suspect]
     Indication: BREAST CANCER
     Dosage: (CYCLICAL), INTRAVENOUS
     Route: 042
     Dates: start: 20041015
  4. PACLITAXEL [Suspect]
     Indication: BREAST CANCER
     Dosage: (CYCLICAL)
     Dates: start: 20041015

REACTIONS (6)
  - CHILLS [None]
  - COMPLETED SUICIDE [None]
  - DIARRHOEA [None]
  - HYPERHIDROSIS [None]
  - SYNCOPE [None]
  - VOMITING [None]
